FAERS Safety Report 8997738 (Version 1)
Quarter: 2013Q1

REPORT INFORMATION
  Report Type: Report from Study
  Country: US (occurrence: US)
  Receive Date: 20130104
  Receipt Date: 20130104
  Transmission Date: 20140127
  Serious: Yes (Hospitalization)
  Sender: FDA-Public Use
  Company Number: PHHO2010US18842

PATIENT
  Age: 63 Year
  Sex: Male

DRUGS (19)
  1. NAPROXEN [Suspect]
     Indication: OSTEOARTHRITIS
     Dosage: 500 MG, BID
     Dates: start: 20101019
  2. OMEPRAZOLE [Suspect]
     Indication: OSTEOARTHRITIS
  3. PLACEBO [Suspect]
     Indication: OSTEOARTHRITIS
     Dates: start: 20101019
  4. KU-ZYME [Concomitant]
  5. COQ10 [Concomitant]
  6. COREG [Concomitant]
     Indication: HYPERTENSION
  7. LISINOPRIL [Concomitant]
     Indication: HYPERTENSION
  8. DIGOXIN [Concomitant]
     Indication: HEART RATE IRREGULAR
  9. MICRO-K [Concomitant]
  10. LASIX [Concomitant]
     Indication: OEDEMA PERIPHERAL
  11. PRAVASTATIN [Concomitant]
     Indication: HYPERCHOLESTEROLAEMIA
  12. ULTRAM [Concomitant]
     Indication: PAIN
  13. ZINC [Concomitant]
  14. PROCARDIA [Concomitant]
     Indication: HYPERTENSION
  15. NITROGLYCERIN [Concomitant]
     Indication: CHEST PAIN
  16. GLUCOSAMINE [Concomitant]
  17. MULTIVITAMINS [Concomitant]
  18. VITAMIN C [Concomitant]
  19. FLEXAGEN [Concomitant]

REACTIONS (3)
  - Small intestinal obstruction [Recovered/Resolved]
  - Influenza [Recovered/Resolved]
  - Diarrhoea [Recovered/Resolved]
